FAERS Safety Report 10027380 (Version 1)
Quarter: 2014Q1

REPORT INFORMATION
  Report Type: Spontaneous
  Country: FR (occurrence: None)
  Receive Date: 20140318
  Receipt Date: 20140318
  Transmission Date: 20141002
  Serious: Yes (Hospitalization)
  Sender: FDA-Public Use
  Company Number: 2012RT000002

PATIENT
  Age: 53 Year
  Sex: Male

DRUGS (3)
  1. CYSTEAMINE BITARTRATE [Suspect]
     Indication: HUNTINGTON^S DISEASE
     Route: 048
     Dates: start: 20110711, end: 20121108
  2. IMOVANE [Concomitant]
  3. FORLAX [Concomitant]

REACTIONS (1)
  - Lymphopenia [None]
